FAERS Safety Report 9290852 (Version 1)
Quarter: 2013Q2

REPORT INFORMATION
  Report Type: Spontaneous
  Country: US (occurrence: US)
  Receive Date: 20130515
  Receipt Date: 20130515
  Transmission Date: 20140414
  Serious: Yes (Hospitalization)
  Sender: FDA-Public Use
  Company Number: US-BAYER-2013-059589

PATIENT
  Age: 25 Year
  Sex: Female
  Weight: 98.87 kg

DRUGS (13)
  1. YAZ [Suspect]
  2. GIANVI [Suspect]
  3. LEXAPRO [Concomitant]
  4. ATIVAN [Concomitant]
  5. GENTAMICIN [Concomitant]
     Dosage: 0.3 %, UNK
     Dates: start: 20110720
  6. METHYLPREDNISOLONE [METHYLPREDNISOLONE] [Concomitant]
     Dosage: 4 MG, UNK
     Dates: start: 20110809
  7. VICODIN [Concomitant]
  8. COLACE [Concomitant]
  9. LORAZEPAM [Concomitant]
  10. MORPHINE [Concomitant]
     Indication: PAIN MANAGEMENT
  11. IBUPROFEN [Concomitant]
  12. KETOROLAC [Concomitant]
  13. MEDROL [Concomitant]
     Indication: INFECTION

REACTIONS (3)
  - Pulmonary embolism [None]
  - Thrombophlebitis superficial [None]
  - Deep vein thrombosis [None]
